FAERS Safety Report 11181654 (Version 2)
Quarter: 2016Q3

REPORT INFORMATION
  Report Type: Spontaneous
  Country: US (occurrence: US)
  Receive Date: 20150611
  Receipt Date: 20160915
  Transmission Date: 20161109
  Serious: No
  Sender: FDA-Public Use
  Company Number: US-ASTELLAS-2015US014465

PATIENT
  Sex: Male

DRUGS (1)
  1. XTANDI [Suspect]
     Active Substance: ENZALUTAMIDE
     Indication: PROSTATE CANCER
     Dosage: 160 MG, ONCE DAILY (FOUR CAPSULES ONCE DAILY)
     Route: 048
     Dates: start: 20150324

REACTIONS (3)
  - Irritable bowel syndrome [Unknown]
  - Fatigue [Recovering/Resolving]
  - Hot flush [Unknown]
